FAERS Safety Report 8903721 (Version 1)
Quarter: 2012Q4

REPORT INFORMATION
  Report Type: 
  Country: US (occurrence: US)
  Receive Date: 20121112
  Receipt Date: 20121112
  Transmission Date: 20130627
  Serious: Yes (Hospitalization, Other)
  Sender: FDA-Public Use
  Company Number: CHPA2012US023291

PATIENT
  Age: 26 Year
  Sex: Female

DRUGS (1)
  1. THERAFLU MAX-D [Suspect]
     Indication: SINUSITIS
     Dosage: Unk, Unk
     Route: 048
     Dates: start: 200911

REACTIONS (8)
  - Sinusitis [Not Recovered/Not Resolved]
  - Malaise [Not Recovered/Not Resolved]
  - Irritable bowel syndrome [Not Recovered/Not Resolved]
  - Bronchitis [Unknown]
  - Scar [Unknown]
  - Exposure during pregnancy [Unknown]
  - Maternal exposure during pregnancy [None]
  - Caesarean section [None]
